FAERS Safety Report 23220171 (Version 2)
Quarter: 2023Q4

REPORT INFORMATION
  Report Type: Report from Study
  Country: CA (occurrence: CA)
  Receive Date: 20231123
  Receipt Date: 20231127
  Transmission Date: 20240109
  Serious: Yes (Other)
  Sender: FDA-Public Use
  Company Number: CA-ABBVIE-5499364

PATIENT
  Sex: Male

DRUGS (5)
  1. SKYRIZI [Suspect]
     Active Substance: RISANKIZUMAB-RZAA
     Indication: Crohn^s disease
     Dosage: DRUG END DATE: 2023?WEEK 12
     Route: 058
  2. SKYRIZI [Suspect]
     Active Substance: RISANKIZUMAB-RZAA
     Dosage: DRUG START DATE 2023
     Route: 058
  3. SKYRIZI [Suspect]
     Active Substance: RISANKIZUMAB-RZAA
     Indication: Crohn^s disease
     Dosage: DRUG END DATE: 2023?WEEK 0
     Route: 042
     Dates: start: 20230825
  4. SKYRIZI [Suspect]
     Active Substance: RISANKIZUMAB-RZAA
     Indication: Crohn^s disease
     Dosage: DRUG START AND END DATE: 2023?WEEK 4
     Route: 042
  5. SKYRIZI [Suspect]
     Active Substance: RISANKIZUMAB-RZAA
     Indication: Crohn^s disease
     Dosage: DRUG START AND END DATE: 2023?WEEK 8
     Route: 042

REACTIONS (4)
  - Deafness [Unknown]
  - Injection site haemorrhage [Unknown]
  - Injection site papule [Unknown]
  - Device issue [Unknown]

NARRATIVE: CASE EVENT DATE: 20230101
